FAERS Safety Report 4769920-2 (Version None)
Quarter: 2005Q3

REPORT INFORMATION
  Report Type: 
  Country: None (occurrence: None)
  Receive Date: 20050912
  Receipt Date: 20050615
  Transmission Date: 20060218
  Serious: No
  Sender: FDA-Public Use
  Company Number: 2005-01308

PATIENT
  Sex: 0

DRUGS (1)
  1. VELCADE [Suspect]
     Dates: start: 20040101

REACTIONS (1)
  - NEUROPATHY PERIPHERAL [None]
